FAERS Safety Report 10301471 (Version 1)
Quarter: 2014Q3

REPORT INFORMATION
  Report Type: Spontaneous
  Country: US (occurrence: None)
  Receive Date: 20140709
  Receipt Date: 20140709
  Transmission Date: 20150326
  Serious: Yes (Hospitalization)
  Sender: FDA-Public Use
  Company Number: None

PATIENT
  Age: 101 Year
  Sex: Female
  Weight: 48.08 kg

DRUGS (1)
  1. PHENAZOPYRIDINE. [Suspect]
     Active Substance: PHENAZOPYRIDINE
     Indication: URINARY TRACT INFECTION
     Dosage: 1 DOSE THREE TIMES DAILY TAKEN BY MOUTH
     Route: 048
     Dates: start: 20140704, end: 20140705

REACTIONS (1)
  - Incontinence [None]

NARRATIVE: CASE EVENT DATE: 20140705
